FAERS Safety Report 4637493-0 (Version None)
Quarter: 2005Q1

REPORT INFORMATION
  Report Type: 
  Country: None (occurrence: None)
  Receive Date: 20050325
  Receipt Date: 20041208
  Transmission Date: 20050727
  Serious: No
  Sender: FDA-Public Use
  Company Number: USA041285624

PATIENT
  Age: 90 Year
  Sex: Female
  Weight: 70 kg

DRUGS (3)
  1. FORTEO [Suspect]
     Indication: OSTEOPOROSIS
     Dosage: 20 UG DAY
     Dates: start: 20041118, end: 20041124
  2. CALCIUM WITH VITAMIN D [Concomitant]
  3. MULTI-VITAMIN [Concomitant]

REACTIONS (5)
  - DIZZINESS [None]
  - HEADACHE [None]
  - HYPERTENSION [None]
  - INJECTION SITE PAIN [None]
  - RASH ERYTHEMATOUS [None]
